FAERS Safety Report 9861076 (Version 2)
Quarter: 2014Q1

REPORT INFORMATION
  Report Type: Spontaneous
  Country: FR (occurrence: FR)
  Receive Date: 20140202
  Receipt Date: 20140202
  Transmission Date: 20141002
  Serious: Yes (Disabling)
  Sender: FDA-Public Use
  Company Number: FR-ALLERGAN-1303306US

PATIENT
  Age: 76 Year
  Sex: Female

DRUGS (1)
  1. BOTOX [Suspect]
     Indication: PARAPARESIS
     Dosage: 400 UNITS, SINGLE
     Route: 030
     Dates: start: 20130204, end: 20130204

REACTIONS (9)
  - Muscular weakness [Recovering/Resolving]
  - Dry eye [Recovered/Resolved]
  - Constipation [Recovered/Resolved]
  - Urinary tract disorder [Recovered/Resolved]
  - Off label use [Unknown]
  - Dry mouth [Recovered/Resolved]
  - Pain in extremity [Recovering/Resolving]
  - Eyelid ptosis [Recovered/Resolved]
  - Dysphonia [Recovered/Resolved]
